FAERS Safety Report 16075292 (Version 3)
Quarter: 2020Q3

REPORT INFORMATION
  Report Type: Report from Study
  Country: US (occurrence: US)
  Receive Date: 20190315
  Receipt Date: 20200831
  Transmission Date: 20201102
  Serious: Yes (Hospitalization)
  Sender: FDA-Public Use
  Company Number: US-ROCHE-2280947

PATIENT
  Age: 54 Year
  Sex: Female
  Weight: 80 kg

DRUGS (27)
  1. DARATUMUMAB [Suspect]
     Active Substance: DARATUMUMAB
     Indication: PLASMA CELL MYELOMA
     Dosage: ON 05/MAR/2019, AT 11:10, SHE RECEIVED THE MOST RECENT DOSE (1280 MG) OF DARATUMUMAB PRIOR TO AE (AD
     Route: 042
     Dates: start: 20190226
  2. OXYCODONE [Concomitant]
     Active Substance: OXYCODONE
     Indication: PAIN
     Route: 048
     Dates: start: 20180815
  3. RANITIDINE. [Concomitant]
     Active Substance: RANITIDINE
     Indication: PAIN
     Route: 048
     Dates: start: 20171010
  4. DIPHENHYDRAMINE. [Concomitant]
     Active Substance: DIPHENHYDRAMINE
     Route: 048
     Dates: start: 20190226, end: 20190226
  5. ALBUTEROL. [Concomitant]
     Active Substance: ALBUTEROL
     Dates: start: 20190226, end: 20190226
  6. ACETAMINOPHEN. [Concomitant]
     Active Substance: ACETAMINOPHEN
     Route: 048
     Dates: start: 20190226, end: 20190226
  7. ATEZOLIZUMAB. [Suspect]
     Active Substance: ATEZOLIZUMAB
     Indication: PLASMA CELL MYELOMA
     Dosage: ON 27/FEB/2019, AT 09:25, SHE RECEIVED THE MOST RECENT DOSE (840 MG) OF ATEZOLIZUMAB PRIOR TO AE (AD
     Route: 042
     Dates: start: 20190227
  8. MAGNESIUM OXIDE. [Concomitant]
     Active Substance: MAGNESIUM OXIDE
     Route: 048
     Dates: start: 20190130, end: 20190301
  9. MONTELUKAST [Concomitant]
     Active Substance: MONTELUKAST SODIUM
     Route: 048
     Dates: start: 20190226, end: 20190226
  10. DEXAMETHASONE. [Concomitant]
     Active Substance: DEXAMETHASONE
     Route: 048
     Dates: start: 20190226, end: 20190226
  11. DEXAMETHASONE. [Concomitant]
     Active Substance: DEXAMETHASONE
     Route: 042
     Dates: start: 20190305, end: 20190305
  12. FENTANYL. [Concomitant]
     Active Substance: FENTANYL
     Dosage: 25
     Route: 042
     Dates: start: 20190211, end: 20190211
  13. DIPHENHYDRAMINE. [Concomitant]
     Active Substance: DIPHENHYDRAMINE
     Route: 048
     Dates: start: 20190305, end: 20190305
  14. ACYCLOVIR. [Concomitant]
     Active Substance: ACYCLOVIR
     Route: 048
     Dates: start: 20170215
  15. MIDAZOLAM. [Concomitant]
     Active Substance: MIDAZOLAM
     Route: 042
     Dates: start: 20190211, end: 20190211
  16. PROCHLORPERAZINE. [Concomitant]
     Active Substance: PROCHLORPERAZINE
     Route: 042
     Dates: start: 20190226, end: 20190226
  17. MIDAZOLAM. [Concomitant]
     Active Substance: MIDAZOLAM
     Route: 042
     Dates: start: 20190211, end: 20190211
  18. DEXAMETHASONE. [Concomitant]
     Active Substance: DEXAMETHASONE
     Route: 042
     Dates: start: 20190226, end: 20190226
  19. HYDROCHLOROTHIAZIDE. [Concomitant]
     Active Substance: HYDROCHLOROTHIAZIDE
     Indication: BLOOD PRESSURE MEASUREMENT
     Route: 048
     Dates: start: 20140718
  20. POTASSIUM CHLORIDE. [Concomitant]
     Active Substance: POTASSIUM CHLORIDE
     Dosage: 10
     Route: 048
     Dates: start: 20190130, end: 20190301
  21. ALBUTEROL. [Concomitant]
     Active Substance: ALBUTEROL
     Dates: start: 20190305, end: 20190305
  22. ACETAMINOPHEN. [Concomitant]
     Active Substance: ACETAMINOPHEN
     Route: 048
     Dates: start: 20190305, end: 20190305
  23. POMALIDOMIDE [Suspect]
     Active Substance: POMALIDOMIDE
     Indication: PLASMA CELL MYELOMA
     Dosage: ON 07/MAR/2019, SHE RECEIVED THE MOST RECENT DOSE (4 MG) OF POMALIDOMIDE PRIOR TO AE (ADVERSE EVENT)
     Route: 048
     Dates: start: 20190226
  24. GABAPENTIN. [Concomitant]
     Active Substance: GABAPENTIN
     Indication: PAIN
     Route: 048
     Dates: start: 20180320
  25. LIDOCAINE. [Concomitant]
     Active Substance: LIDOCAINE
     Route: 058
     Dates: start: 20190211, end: 20190211
  26. FENTANYL. [Concomitant]
     Active Substance: FENTANYL
     Dosage: 50
     Route: 042
     Dates: start: 20190211, end: 20190211
  27. SODIUM CHLORIDE 0.9% [Concomitant]
     Active Substance: SODIUM CHLORIDE
     Route: 042
     Dates: start: 20190226, end: 20190226

REACTIONS (1)
  - Lymphadenitis [Recovered/Resolved]

NARRATIVE: CASE EVENT DATE: 20190308
